FAERS Safety Report 19174426 (Version 1)
Quarter: 2021Q2

REPORT INFORMATION
  Report Type: Spontaneous
  Country: US (occurrence: US)
  Receive Date: 20210423
  Receipt Date: 20210423
  Transmission Date: 20210717
  Serious: No
  Sender: FDA-Public Use
  Company Number: US-LANNETT COMPANY, INC.-US-2020LAN000299

PATIENT
  Age: 64 Year
  Sex: Female

DRUGS (1)
  1. LEVOTHYROXINE SODIUM. [Suspect]
     Active Substance: LEVOTHYROXINE SODIUM
     Indication: PRODUCT USED FOR UNKNOWN INDICATION
     Dosage: UNK
     Route: 065

REACTIONS (7)
  - Decreased appetite [Unknown]
  - Abdominal distension [Unknown]
  - Asthenia [Unknown]
  - Feeling jittery [Unknown]
  - Gluten sensitivity [Unknown]
  - Arthralgia [Unknown]
  - Sinus disorder [Unknown]

NARRATIVE: CASE EVENT DATE: 20201004
